FAERS Safety Report 6548185-5 (Version None)
Quarter: 2010Q1

REPORT INFORMATION
  Report Type: 
  Country: None (occurrence: None)
  Receive Date: 20100124
  Receipt Date: 20090302
  Transmission Date: 20100710
  Serious: No
  Sender: FDA-Public Use
  Company Number: US-ALLERGAN-0902737US

PATIENT
  Age: 76 Year
  Sex: Female

DRUGS (2)
  1. RESTASIS [Suspect]
     Indication: DRY EYE
     Dosage: UNK, BID
     Route: 047
  2. LOTEMAX [Concomitant]
     Indication: STEROID THERAPY
     Route: 047

REACTIONS (3)
  - INCORRECT DOSE ADMINISTERED [None]
  - SUPERFICIAL INJURY OF EYE [None]
  - WRONG TECHNIQUE IN DRUG USAGE PROCESS [None]
